FAERS Safety Report 6436147-8 (Version None)
Quarter: 2009Q4

REPORT INFORMATION
  Report Type: 
  Country: None (occurrence: None)
  Receive Date: 20091111
  Receipt Date: 20091030
  Transmission Date: 20100525
  Serious: Yes (Other)
  Sender: FDA-Public Use
  Company Number: BR-PFIZER INC-2009241440

PATIENT
  Age: 71 Year
  Sex: Male
  Weight: 90 kg

DRUGS (3)
  1. VIAGRA [Suspect]
     Indication: ERECTILE DYSFUNCTION
     Dosage: 25 MG, 1X/DAY
     Route: 048
     Dates: start: 20030101
  2. CARVEDILOL [Concomitant]
     Dosage: UNK
     Dates: start: 20080101
  3. AMIODARONE [Concomitant]
     Dosage: UNK

REACTIONS (3)
  - CARDIAC PACEMAKER INSERTION [None]
  - DRUG INEFFECTIVE [None]
  - PROSTATE CANCER [None]
